FAERS Safety Report 22023416 (Version 2)
Quarter: 2023Q1

REPORT INFORMATION
  Report Type: Spontaneous
  Country: NO (occurrence: NO)
  Receive Date: 20230223
  Receipt Date: 20230224
  Transmission Date: 20230417
  Serious: Yes (Other)
  Sender: FDA-Public Use
  Company Number: None

PATIENT
  Age: 28 Year
  Sex: Male

DRUGS (3)
  1. PALIPERIDONE PALMITATE [Suspect]
     Active Substance: PALIPERIDONE PALMITATE
     Indication: Schizophrenia
     Route: 030
     Dates: start: 2016
  2. PALIPERIDONE PALMITATE [Suspect]
     Active Substance: PALIPERIDONE PALMITATE
  3. PALIPERIDONE PALMITATE [Suspect]
     Active Substance: PALIPERIDONE PALMITATE

REACTIONS (9)
  - Erectile dysfunction [Not Recovered/Not Resolved]
  - Back disorder [Not Recovered/Not Resolved]
  - Overweight [Not Recovered/Not Resolved]
  - Apathy [Not Recovered/Not Resolved]
  - Social problem [Not Recovered/Not Resolved]
  - Impaired quality of life [Unknown]
  - Hypersomnia [Not Recovered/Not Resolved]
  - Impaired work ability [Not Recovered/Not Resolved]
  - Head discomfort [Unknown]

NARRATIVE: CASE EVENT DATE: 20170310
